FAERS Safety Report 10378011 (Version 2)
Quarter: 2014Q3

REPORT INFORMATION
  Report Type: Spontaneous
  Country: DE (occurrence: None)
  Receive Date: 20140807
  Receipt Date: 20140812
  Transmission Date: 20150326
  Serious: Yes (Other)
  Sender: FDA-Public Use
  Company Number: AUR-APL-2014-08453

PATIENT
  Sex: Female
  Weight: 131 kg

DRUGS (4)
  1. VIGANTOLETTEN [Concomitant]
     Active Substance: CHOLECALCIFEROL
  2. INSULIN BASAL [Concomitant]
     Active Substance: INSULIN NOS
  3. METFORMIN [Suspect]
     Active Substance: METFORMIN HYDROCHLORIDE
     Indication: POLYCYSTIC OVARIES
     Route: 048
     Dates: start: 20121005, end: 20130627
  4. RENNIE [Concomitant]
     Active Substance: MAGNESIUM CARBONATE

REACTIONS (7)
  - Congenital anomaly in offspring [None]
  - Vitamin D deficiency [None]
  - Caesarean section [None]
  - Off label use [None]
  - Maternal exposure during pregnancy [None]
  - Dyspepsia [None]
  - Polycystic ovaries [None]

NARRATIVE: CASE EVENT DATE: 20121005
